FAERS Safety Report 7700416-1 (Version None)
Quarter: 2011Q3

REPORT INFORMATION
  Report Type: 
  Country: None (occurrence: None)
  Receive Date: 20110822
  Receipt Date: 20110808
  Transmission Date: 20111222
  Serious: Yes (Other)
  Sender: FDA-Public Use
  Company Number: TW-ELI_LILLY_AND_COMPANY-TW201108000230

PATIENT
  Age: 75 Year
  Sex: Female

DRUGS (8)
  1. FORTEO [Suspect]
     Indication: BACK PAIN
     Dosage: UNK, UNKNOWN
     Dates: start: 20110601
  2. AMIODARONE HCL [Concomitant]
  3. ZOLPIDEM [Concomitant]
  4. CORTISONE ACETATE [Concomitant]
  5. FORTEO [Suspect]
     Dosage: UNK
     Route: 065
     Dates: end: 20110730
  6. BISOPROLOL FUMARATE [Concomitant]
  7. POTASSIUM CHLORIDE [Concomitant]
  8. FORTEO [Suspect]
     Route: 065

REACTIONS (11)
  - DECREASED APPETITE [None]
  - VOMITING [None]
  - CARDIAC VALVE DISEASE [None]
  - CONSTIPATION [None]
  - ASTHENIA [None]
  - NAUSEA [None]
  - HYPOTENSION [None]
  - OFF LABEL USE [None]
  - MUSCULAR WEAKNESS [None]
  - ARRHYTHMIA [None]
  - TACHYCARDIA [None]
